FAERS Safety Report 19983993 (Version 1)
Quarter: 2021Q4

REPORT INFORMATION
  Report Type: Spontaneous
  Country: IN (occurrence: IN)
  Receive Date: 20211021
  Receipt Date: 20211021
  Transmission Date: 20220303
  Serious: Yes (Other)
  Sender: FDA-Public Use
  Company Number: IN-BRISTOL-MYERS SQUIBB COMPANY-BMS-2021-108491

PATIENT
  Age: 74 Year
  Sex: Female

DRUGS (3)
  1. ELIQUIS [Suspect]
     Active Substance: APIXABAN
     Indication: Cerebrovascular accident prophylaxis
     Dosage: 5 MILLIGRAM, BID
     Route: 048
     Dates: start: 2019
  2. OLMEZEST [Concomitant]
     Indication: Product used for unknown indication
     Dosage: 20 MILLIGRAM, QD FOR 90 DAYS
     Route: 065
     Dates: start: 20211012
  3. METPURE XL [Concomitant]
     Indication: Product used for unknown indication
     Dosage: 12.5 MILLIGRAM, QD FOR 90 DAYS
     Route: 065
     Dates: start: 20211012

REACTIONS (4)
  - Atrial fibrillation [Unknown]
  - Pulmonary arterial hypertension [Unknown]
  - Insomnia [Unknown]
  - Hypertension [Unknown]

NARRATIVE: CASE EVENT DATE: 20211012
